FAERS Safety Report 6370070-2 (Version None)
Quarter: 2009Q3

REPORT INFORMATION
  Report Type: 
  Country: None (occurrence: None)
  Receive Date: 20090923
  Receipt Date: 20071226
  Transmission Date: 20100115
  Serious: Yes (Hospitalization)
  Sender: FDA-Public Use
  Company Number: US-ASTRAZENECA-2006UW22232

PATIENT
  Age: 21893 Day
  Sex: Female
  Weight: 160.6 kg

DRUGS (42)
  1. SEROQUEL [Suspect]
     Indication: DEPRESSION
     Dosage: 25MG, 100 MG
     Route: 048
     Dates: start: 19970101, end: 20020101
  2. SEROQUEL [Suspect]
     Dosage: 25 TO 200 MG
     Route: 048
     Dates: start: 19990525
  3. RISPERDAL [Concomitant]
  4. ADVAIR DISKUS 100/50 [Concomitant]
     Dosage: 50-250 MG
     Route: 048
  5. LORAZEPAM [Concomitant]
     Dosage: 0.5-2  MG
     Route: 048
  6. HYDROCHLOROTHIAZIDE [Concomitant]
     Route: 048
  7. UNITHROID [Concomitant]
     Route: 048
  8. SINGULAIR [Concomitant]
     Route: 048
  9. LIPITOR [Concomitant]
     Route: 048
  10. HUMULIN 70/30 [Concomitant]
     Route: 058
  11. EFFEXOR XR [Concomitant]
     Route: 048
  12. OMEPRAZOLE [Concomitant]
     Route: 048
  13. BUPROPION HCL BR [Concomitant]
     Route: 048
  14. ALBUTEROL [Concomitant]
     Route: 055
  15. ALTACE [Concomitant]
     Route: 048
  16. CLARINEX [Concomitant]
     Route: 048
  17. HYDROCODONE-ACI [Concomitant]
     Route: 048
  18. MICROLET [Concomitant]
  19. PREVACID [Concomitant]
     Route: 048
  20. PROVERA [Concomitant]
     Indication: MENOPAUSE
     Route: 048
  21. NAPROSYN [Concomitant]
     Route: 048
  22. CELEBREX [Concomitant]
     Indication: ARTHRITIS
     Route: 048
  23. PHENERGAN [Concomitant]
     Route: 048
  24. STEROIDS [Concomitant]
     Route: 048
  25. XOPENEX [Concomitant]
  26. MUCO-FEN [Concomitant]
     Route: 048
  27. FERROUS SULFATE TAB [Concomitant]
     Route: 048
  28. HUMAN RECOMBINANT [Concomitant]
     Route: 048
  29. TOPROL-XL [Concomitant]
     Route: 048
  30. WELLBUTRIN SR [Concomitant]
     Route: 048
  31. TYLENOL (CAPLET) [Concomitant]
     Route: 048
  32. ADDERALL 10 [Concomitant]
     Route: 048
  33. BUSPAR [Concomitant]
     Dosage: 15-50 MG
     Route: 048
  34. GLUCOTROL [Concomitant]
     Route: 048
  35. GLUCOPHAGE [Concomitant]
     Route: 048
  36. PREDNISONE TAB [Concomitant]
     Dosage: 10-20 MG
     Route: 048
  37. VIOXX [Concomitant]
     Route: 048
  38. ZOLOFT [Concomitant]
     Dosage: 50-100 MG
     Route: 048
  39. ZANTAC [Concomitant]
     Route: 048
  40. PREMARIN [Concomitant]
     Dosage: 125-625 MG
     Route: 048
  41. BUSPIRONE HCL [Concomitant]
  42. TEQUIN [Concomitant]
     Route: 048

REACTIONS (4)
  - DIABETIC COMA [None]
  - FATIGUE [None]
  - MALAISE [None]
  - TYPE 2 DIABETES MELLITUS [None]
